FAERS Safety Report 11305229 (Version 1)
Quarter: 2015Q3

REPORT INFORMATION
  Report Type: Spontaneous
  Country: US (occurrence: US)
  Receive Date: 20150723
  Receipt Date: 20150723
  Transmission Date: 20151125
  Serious: No
  Sender: FDA-Public Use
  Company Number: US-JNJFOC-20150608634

PATIENT
  Age: 67 Year
  Sex: Male
  Weight: 79.38 kg

DRUGS (3)
  1. ADVIL COLD [Concomitant]
     Indication: NASAL DECONGESTION THERAPY
     Route: 065
  2. ZYRTEC [Suspect]
     Active Substance: CETIRIZINE HYDROCHLORIDE
     Route: 048
  3. ZYRTEC [Suspect]
     Active Substance: CETIRIZINE HYDROCHLORIDE
     Indication: MULTIPLE ALLERGIES
     Dosage: AT NIGHT
     Route: 048
     Dates: start: 20150608

REACTIONS (2)
  - Wrong patient received medication [Unknown]
  - Drug ineffective [Unknown]
